FAERS Safety Report 5811320-8 (Version None)
Quarter: 2008Q3

REPORT INFORMATION
  Report Type: 
  Country: None (occurrence: None)
  Receive Date: 20080710
  Receipt Date: 20080625
  Transmission Date: 20090109
  Serious: Yes (Disabling)
  Sender: FDA-Public Use
  Company Number: S08-UKI-02311-01

PATIENT
  Age: 67 Year
  Sex: Male

DRUGS (10)
  1. ESCITALOPRAM OXALATE [Suspect]
     Indication: DEPRESSION
     Dosage: 10 MG QD PO
     Route: 048
     Dates: start: 20060407, end: 20061001
  2. ESCITALOPRAM OXALATE [Suspect]
     Indication: DEPRESSION
     Dosage: 10 MG QD PO
     Route: 048
     Dates: start: 20061101, end: 20070401
  3. ESCITALOPRAM OXALATE [Suspect]
     Indication: DEPRESSION
     Dosage: 10 MG QD PO
     Route: 048
     Dates: start: 20070501, end: 20070821
  4. MIRTAZAPINE [Suspect]
     Indication: DEPRESSION
     Dosage: 30 MG QD PO
     Route: 048
     Dates: start: 20061106, end: 20080201
  5. FLOXACILLIN SODIUM [Concomitant]
  6. AMIAS (CANDESARTAN CILEXETIL) [Concomitant]
  7. CARBOCISTEINE [Concomitant]
  8. DOXYCYCLINE HCL [Concomitant]
  9. LANSOPRAZOLE [Concomitant]
  10. BENDROFLUAZIDE [Concomitant]

REACTIONS (9)
  - ABNORMAL BEHAVIOUR [None]
  - AGGRESSION [None]
  - ANTISOCIAL BEHAVIOUR [None]
  - DIARRHOEA [None]
  - DRUG INTERACTION [None]
  - EYE DISORDER [None]
  - MANIA [None]
  - MOOD SWINGS [None]
  - NERVOUS SYSTEM DISORDER [None]
